FAERS Safety Report 4505055-1 (Version None)
Quarter: 2004Q4

REPORT INFORMATION
  Report Type: 
  Country: None (occurrence: None)
  Receive Date: 20041117
  Receipt Date: 20041117
  Transmission Date: 20050328
  Serious: Yes (Hospitalization)
  Sender: FDA-Public Use
  Company Number: None

PATIENT
  Age: 47 Year
  Sex: Male

DRUGS (5)
  1. FUROSEMIDE [Suspect]
     Indication: FLUID RETENTION
     Dosage: 40 MG QD
     Dates: start: 20040616
  2. RIBAVIRIN [Concomitant]
  3. PEGASYS [Concomitant]
  4. COLCHICINE [Concomitant]
  5. KCL TAB [Concomitant]

REACTIONS (3)
  - HYPOKALAEMIA [None]
  - HYPOVOLAEMIA [None]
  - RENAL FAILURE ACUTE [None]
